FAERS Safety Report 12394460 (Version 1)
Quarter: 2016Q2

REPORT INFORMATION
  Report Type: Spontaneous
  Country: BR (occurrence: BR)
  Receive Date: 20160523
  Receipt Date: 20160523
  Transmission Date: 20160815
  Serious: Yes (Disabling)
  Sender: FDA-Public Use
  Company Number: BR-TEVA-661280ISR

PATIENT
  Age: 76 Year
  Sex: Male

DRUGS (5)
  1. MANTIDAN [Concomitant]
     Active Substance: AMANTADINE HYDROCHLORIDE
  2. SIFROL [Concomitant]
     Active Substance: PRAMIPEXOLE
     Route: 048
  3. CARBIDOPA AND LEVODOPA [Suspect]
     Active Substance: CARBIDOPA\LEVODOPA
     Dosage: CARBIDOPA 25MG+LEVODOPA 250MG
     Route: 048
  4. DONILA DUO [Concomitant]
     Indication: DEMENTIA ALZHEIMER^S TYPE
     Dosage: 1 DOSAGE FORMS DAILY; DONEPEZIL HYDROCHLORIDE 10MG+ MEMANTINE HYDROCHLORIDE 10MG
     Route: 048
     Dates: start: 201604
  5. CAPTOPRIL. [Concomitant]
     Active Substance: CAPTOPRIL
     Route: 048

REACTIONS (5)
  - Bedridden [Unknown]
  - Vomiting [Unknown]
  - Nausea [Unknown]
  - Food intolerance [Recovered/Resolved]
  - Hypertension [Unknown]

NARRATIVE: CASE EVENT DATE: 201604
